FAERS Safety Report 12374709 (Version 8)
Quarter: 2017Q2

REPORT INFORMATION
  Report Type: Spontaneous
  Country: US (occurrence: US)
  Receive Date: 20160517
  Receipt Date: 20170405
  Transmission Date: 20170830
  Serious: No
  Sender: FDA-Public Use
  Company Number: US-PFIZER INC-2016240553

PATIENT
  Age: 55 Year
  Sex: Male
  Weight: 102 kg

DRUGS (10)
  1. VIAGRA [Suspect]
     Active Substance: SILDENAFIL CITRATE
     Dosage: UNK  (1 EVERY 3 DAYS)
     Dates: start: 2014
  2. OXAPROZIN. [Concomitant]
     Active Substance: OXAPROZIN
     Dosage: 20 MG, UNK
  3. ASPIRIN. [Concomitant]
     Active Substance: ASPIRIN
     Dosage: 5 MG, UNK
  4. VIAGRA [Suspect]
     Active Substance: SILDENAFIL CITRATE
     Indication: URINARY INCONTINENCE
     Dosage: UNK,(ONE VIAGRA EVERY 2 OR 3 DAYS, SINCE HE ONLY HAD 10 PILLS FOR THE WHOLE MONTH)
  5. QUINAPRIL. [Concomitant]
     Active Substance: QUINAPRIL
     Dosage: 20 MG, UNK
  6. LYRICA [Concomitant]
     Active Substance: PREGABALIN
     Dosage: 150 MG, UNK
  7. VIAGRA [Suspect]
     Active Substance: SILDENAFIL CITRATE
     Indication: PROSTATOMEGALY
     Dosage: 100 MG, 1X/DAY (ONE EACH DAY IN THE MORNING OR TOWARD THE AFTERNOON)
     Route: 048
     Dates: start: 2010
  8. ALEVE [Concomitant]
     Active Substance: NAPROXEN SODIUM
     Dosage: UNK
  9. NADOLOL. [Concomitant]
     Active Substance: NADOLOL
     Dosage: 100 MG, UNK
  10. HYDROCODONE [Concomitant]
     Active Substance: HYDROCODONE
     Dosage: UNK (3/325 MG)

REACTIONS (6)
  - Product use in unapproved indication [Recovered/Resolved]
  - Pre-existing condition improved [Recovered/Resolved]
  - Pain [Not Recovered/Not Resolved]
  - Therapeutic response unexpected [Recovered/Resolved]
  - Prostatic disorder [Unknown]
  - Condition aggravated [Unknown]

NARRATIVE: CASE EVENT DATE: 2014
